FAERS Safety Report 24679032 (Version 1)
Quarter: 2024Q4

REPORT INFORMATION
  Report Type: Spontaneous
  Country: LB (occurrence: LB)
  Receive Date: 20241129
  Receipt Date: 20241129
  Transmission Date: 20250115
  Serious: Yes (Other)
  Sender: BRISTOL-MYERS SQUIBB COMPANY
  Company Number: LB-BRISTOL-MYERS SQUIBB COMPANY-2024-182761

PATIENT
  Age: 57 Year
  Sex: Female

DRUGS (1)
  1. AZACITIDINE [Suspect]
     Active Substance: AZACITIDINE
     Indication: Acute myeloid leukaemia
     Dosage: 5-DAY CYCLE

REACTIONS (1)
  - Erythema multiforme [Recovering/Resolving]
